FAERS Safety Report 22347952 (Version 3)
Quarter: 2024Q2

REPORT INFORMATION
  Report Type: Report from Study
  Country: US (occurrence: US)
  Receive Date: 20230522
  Receipt Date: 20240404
  Transmission Date: 20240716
  Serious: Yes (Other)
  Sender: FDA-Public Use
  Company Number: US-ABBVIE-4773460

PATIENT
  Age: 73 Year
  Sex: Female

DRUGS (2)
  1. SKYRIZI [Suspect]
     Active Substance: RISANKIZUMAB-RZAA
     Indication: Psoriasis
     Route: 058
  2. SKYRIZI [Suspect]
     Active Substance: RISANKIZUMAB-RZAA
     Route: 058
     Dates: start: 20211221, end: 20240125

REACTIONS (14)
  - Haemorrhage [Recovered/Resolved]
  - Road traffic accident [Recovered/Resolved]
  - Alopecia [Not Recovered/Not Resolved]
  - Fall [Recovered/Resolved]
  - Stress [Recovered/Resolved]
  - Vomiting [Recovered/Resolved]
  - Skin exfoliation [Not Recovered/Not Resolved]
  - Chest discomfort [Unknown]
  - Emotional distress [Recovered/Resolved]
  - Polyarthritis [Unknown]
  - Upper limb fracture [Unknown]
  - Haemorrhage [Recovered/Resolved]
  - Dry skin [Unknown]
  - Arthritis [Unknown]

NARRATIVE: CASE EVENT DATE: 20221103
